FAERS Safety Report 13672744 (Version 2)
Quarter: 2017Q3

REPORT INFORMATION
  Report Type: Spontaneous
  Country: SA (occurrence: SA)
  Receive Date: 20170621
  Receipt Date: 20170711
  Transmission Date: 20171127
  Serious: Yes (Hospitalization, Other)
  Sender: FDA-Public Use
  Company Number: SA-CONCORDIA PHARMACEUTICALS INC.-E2B_00008186

PATIENT
  Age: 11 Year
  Sex: Male

DRUGS (5)
  1. PREDNISOLONE. [Suspect]
     Active Substance: PREDNISOLONE
     Indication: BURKITT^S LYMPHOMA
  2. METHOTREXATE. [Suspect]
     Active Substance: METHOTREXATE
     Indication: BURKITT^S LYMPHOMA
  3. DOXORUBICIN [Suspect]
     Active Substance: DOXORUBICIN
     Indication: BURKITT^S LYMPHOMA
  4. CYCLOPHOSPHAMIDE. [Suspect]
     Active Substance: CYCLOPHOSPHAMIDE
     Indication: BURKITT^S LYMPHOMA
  5. VINCRISTINE [Suspect]
     Active Substance: VINCRISTINE
     Indication: BURKITT^S LYMPHOMA

REACTIONS (14)
  - Depression [Recovered/Resolved]
  - Cholestasis [Recovered/Resolved]
  - Hepatotoxicity [Recovered/Resolved]
  - Neutropenia [Recovered/Resolved]
  - Colitis [Recovered/Resolved]
  - Thrombocytopenia [Recovered/Resolved]
  - Mucosal toxicity [Recovered/Resolved]
  - Drug clearance decreased [Recovered/Resolved]
  - Endocarditis bacterial [Recovered/Resolved]
  - Affect lability [Recovered/Resolved]
  - Infection [Recovered/Resolved]
  - Skin toxicity [Recovered/Resolved]
  - Toxicity to various agents [Recovered/Resolved]
  - Bone marrow toxicity [Recovered/Resolved]
